FAERS Safety Report 9838300 (Version 6)
Quarter: 2015Q3

REPORT INFORMATION
  Report Type: Spontaneous
  Country: US (occurrence: US)
  Receive Date: 20140123
  Receipt Date: 20150817
  Transmission Date: 20151125
  Serious: No
  Sender: FDA-Public Use
  Company Number: US-GILEAD-2014-0092773

PATIENT
  Age: 42 Year
  Sex: Female

DRUGS (6)
  1. LETAIRIS [Suspect]
     Active Substance: AMBRISENTAN
     Indication: PULMONARY HYPERTENSION
     Dosage: 10 MG, QD
     Route: 048
     Dates: start: 20131003
  2. LETAIRIS [Suspect]
     Active Substance: AMBRISENTAN
     Indication: BEHCET^S SYNDROME
  3. RIOCIGUAT [Concomitant]
     Active Substance: RIOCIGUAT
  4. CARAFATE [Concomitant]
     Active Substance: SUCRALFATE
  5. SILDENAFIL. [Concomitant]
     Active Substance: SILDENAFIL
  6. REVATIO [Concomitant]
     Active Substance: SILDENAFIL CITRATE

REACTIONS (8)
  - Feeling jittery [Unknown]
  - Unevaluable event [Unknown]
  - Rash [Unknown]
  - Dyspnoea [Not Recovered/Not Resolved]
  - Vomiting [Unknown]
  - Tremor [Unknown]
  - Viral infection [Recovered/Resolved]
  - Chest discomfort [Unknown]

NARRATIVE: CASE EVENT DATE: 20140118
